FAERS Safety Report 6940220-5 (Version None)
Quarter: 2010Q3

REPORT INFORMATION
  Report Type: 
  Country: None (occurrence: None)
  Receive Date: 20100825
  Receipt Date: 20100818
  Transmission Date: 20110219
  Serious: Yes (Other)
  Sender: FDA-Public Use
  Company Number: JP-MPIJNJ-2010-02443

PATIENT

DRUGS (3)
  1. VELCADE [Suspect]
     Indication: MULTIPLE MYELOMA
     Dosage: UNK
     Route: 042
     Dates: start: 20100201
  2. DEXAMETHASONE SODIUM PHOSPHATE [Concomitant]
  3. HYDROCORTISONE SODIUM PHOSPHATE [Concomitant]

REACTIONS (3)
  - BLOOD CREATININE ABNORMAL [None]
  - OEDEMA [None]
  - OLIGURIA [None]
